FAERS Safety Report 6837612-1 (Version None)
Quarter: 2010Q3

REPORT INFORMATION
  Report Type: 
  Country: None (occurrence: None)
  Receive Date: 20100708
  Receipt Date: 20100623
  Transmission Date: 20110219
  Serious: Yes (Hospitalization)
  Sender: FDA-Public Use
  Company Number: 2010IT0019

PATIENT
  Age: 15 Month
  Sex: Female

DRUGS (1)
  1. NITISINONE (NITISINONE) [Suspect]
     Indication: TYROSINAEMIA
     Dosage: 1 MG/KG (1 MG/KG, 1 IN 1 D) ORAL
     Route: 048
     Dates: start: 19940101

REACTIONS (3)
  - ALPHA 1 FOETOPROTEIN INCREASED [None]
  - HEPATOBLASTOMA [None]
  - METASTASES TO LUNG [None]
